FAERS Safety Report 5204520-1 (Version None)
Quarter: 2007Q1

REPORT INFORMATION
  Report Type: 
  Country: None (occurrence: None)
  Receive Date: 20070110
  Receipt Date: 20060425
  Transmission Date: 20070707
  Serious: No
  Sender: FDA-Public Use
  Company Number: US-BRISTOL-MYERS SQUIBB COMPANY-13356589

PATIENT
  Age: 5 Decade
  Sex: Male

DRUGS (7)
  1. ABILIFY [Suspect]
     Indication: BIPOLAR DISORDER
  2. ABILIFY [Suspect]
     Indication: GENERALISED ANXIETY DISORDER
  3. ABILIFY [Suspect]
     Indication: ATTENTION DEFICIT/HYPERACTIVITY DISORDER
  4. LAMICTAL [Concomitant]
  5. ZOLOFT [Concomitant]
  6. LUNESTA [Concomitant]
  7. CLONIDINE [Concomitant]

REACTIONS (2)
  - COGWHEEL RIGIDITY [None]
  - DYSTONIA [None]
